FAERS Safety Report 7412692-3 (Version None)
Quarter: 2011Q2

REPORT INFORMATION
  Report Type: 
  Country: None (occurrence: None)
  Receive Date: 20110413
  Receipt Date: 20110404
  Transmission Date: 20111010
  Serious: Yes (Death)
  Sender: FDA-Public Use
  Company Number: US-CUBIST-2011S1000259

PATIENT
  Sex: Male

DRUGS (5)
  1. CUBICIN [Suspect]
     Indication: PRODUCT USED FOR UNKNOWN INDICATION
     Route: 042
  2. CUBICIN [Suspect]
     Indication: ENTEROCOCCAL INFECTION
     Route: 042
  3. CUBICIN [Suspect]
     Route: 042
  4. CUBICIN [Suspect]
     Route: 042
  5. SYNERCID [Concomitant]
     Indication: PRODUCT USED FOR UNKNOWN INDICATION

REACTIONS (2)
  - PRE-EXISTING DISEASE [None]
  - PATHOGEN RESISTANCE [None]
